FAERS Safety Report 18154516 (Version 1)
Quarter: 2020Q3

REPORT INFORMATION
  Report Type: Spontaneous
  Country: GB (occurrence: GB)
  Receive Date: 20200817
  Receipt Date: 20200817
  Transmission Date: 20201103
  Serious: Yes (Hospitalization, Other)
  Sender: FDA-Public Use
  Company Number: GB-SUN PHARMACEUTICAL INDUSTRIES LTD-2020RR-257461

PATIENT
  Age: 65 Year
  Sex: Female

DRUGS (1)
  1. ATORVASTATIN [Suspect]
     Active Substance: ATORVASTATIN
     Indication: PROPHYLAXIS
     Dosage: 40 MILLIGRAM, DAILY
     Route: 065

REACTIONS (1)
  - Autoimmune myositis [Recovered/Resolved]
